FAERS Safety Report 18101332 (Version 1)
Quarter: 2020Q3

REPORT INFORMATION
  Report Type: Spontaneous
  Country: US (occurrence: US)
  Receive Date: 20200801
  Receipt Date: 20200801
  Transmission Date: 20201103
  Serious: Yes (Hospitalization, Other)
  Sender: FDA-Public Use
  Company Number: US-VISTAPHARM, INC.-VER202007-001301

PATIENT
  Age: 43 Year
  Sex: Male

DRUGS (11)
  1. LORAZEPAM. [Concomitant]
     Active Substance: LORAZEPAM
     Indication: STATUS EPILEPTICUS
     Route: 042
  2. VALPROIC ACID. [Suspect]
     Active Substance: VALPROIC ACID
     Dosage: 2000 MG
     Route: 065
  3. ZONISAMIDE. [Suspect]
     Active Substance: ZONISAMIDE
     Dosage: 350 MG
  4. LEVETIRACETAM. [Suspect]
     Active Substance: LEVETIRACETAM
     Indication: PARTIAL SEIZURES
     Dosage: 2000 MG
     Route: 065
  5. VALPROIC ACID. [Suspect]
     Active Substance: VALPROIC ACID
     Indication: PARTIAL SEIZURES
     Dosage: 1500 MG
     Route: 065
  6. ZONISAMIDE. [Suspect]
     Active Substance: ZONISAMIDE
     Dosage: 500 MG
  7. VALPROIC ACID. [Suspect]
     Active Substance: VALPROIC ACID
     Dosage: 750 MG
     Route: 042
  8. ZONISAMIDE. [Suspect]
     Active Substance: ZONISAMIDE
     Indication: PARTIAL SEIZURES
     Dosage: 50 MG
     Route: 065
  9. ZONISAMIDE. [Suspect]
     Active Substance: ZONISAMIDE
     Dosage: 600 MG
  10. LEVETIRACETAM. [Suspect]
     Active Substance: LEVETIRACETAM
     Dosage: 4000 MG
     Route: 065
  11. PHENYTOIN. [Suspect]
     Active Substance: PHENYTOIN
     Indication: PARTIAL SEIZURES
     Dosage: UNKNOWN
     Route: 065

REACTIONS (5)
  - Drug ineffective [Unknown]
  - Pneumonia [Recovering/Resolving]
  - Cytotoxic oedema [Recovering/Resolving]
  - Weight increased [Unknown]
  - Hyperammonaemic encephalopathy [Recovering/Resolving]
